FAERS Safety Report 13069422 (Version 2)
Quarter: 2017Q1

REPORT INFORMATION
  Report Type: Report from Study
  Country: DE (occurrence: DE)
  Receive Date: 20161228
  Receipt Date: 20170111
  Transmission Date: 20170428
  Serious: Yes (Hospitalization, Other)
  Sender: FDA-Public Use
  Company Number: DE-BRISTOL-MYERS SQUIBB COMPANY-BMS-2016-094760

PATIENT
  Age: 80 Year
  Sex: Male
  Weight: 88 kg

DRUGS (12)
  1. ADVANTAN [Concomitant]
     Active Substance: CORTICOSTEROID NOS
     Indication: RASH
     Dosage: 2 OTHER, QD
     Route: 061
     Dates: start: 20160817, end: 20161031
  2. BASODEXAN [Concomitant]
     Indication: PROPHYLAXIS
     Dosage: 2 OTHER, QD
     Route: 061
     Dates: start: 20161101
  3. SOLARAZE [Concomitant]
     Active Substance: DICLOFENAC SODIUM
     Indication: PRODUCT USED FOR UNKNOWN INDICATION
     Dosage: 2 OTHER, UNK
     Route: 061
     Dates: start: 20160605
  4. FRAGMIN [Concomitant]
     Active Substance: DALTEPARIN SODIUM
     Indication: PROPHYLAXIS
     Dosage: 5000 IU, UNK
     Route: 058
     Dates: start: 20161101
  5. LAVASEPT                           /01610101/ [Concomitant]
     Indication: SKIN EROSION
     Dosage: 1 DF, UNK
     Route: 061
     Dates: start: 20161101, end: 20161104
  6. PANTOPRAZOL [Concomitant]
     Active Substance: PANTOPRAZOLE SODIUM
     Indication: PRODUCT USED FOR UNKNOWN INDICATION
     Dosage: 20 MG, QD
     Route: 048
     Dates: start: 20160829
  7. FRAGMIN [Concomitant]
     Active Substance: DALTEPARIN SODIUM
     Indication: PROPHYLAXIS
     Dosage: 5000 IU, QD
     Route: 058
     Dates: start: 20161101
  8. NIVOLUMAB [Suspect]
     Active Substance: NIVOLUMAB
     Indication: MALIGNANT MELANOMA
     Dosage: 1 DF, UNK, 1DF=95UNIT NOS
     Route: 042
     Dates: start: 20160804, end: 20161027
  9. L THYROXIN [Concomitant]
     Active Substance: LEVOTHYROXINE SODIUM
     Indication: HYPOTHYROIDISM
     Dosage: 75 MG, QD
     Route: 048
     Dates: start: 20160928
  10. IPILIMUMAB [Suspect]
     Active Substance: IPILIMUMAB
     Indication: MALIGNANT MELANOMA
     Dosage: 1 DF, UNK,
     Route: 042
     Dates: start: 20160804, end: 20161027
  11. DOCITON [Concomitant]
     Active Substance: PROPRANOLOL HYDROCHLORIDE
     Indication: HYPERTHYROIDISM
     Dosage: 10 MG, TOTAL
     Route: 048
     Dates: start: 20160823, end: 20161101
  12. LAVASEPT                           /01610101/ [Concomitant]
     Indication: SKIN EROSION
     Dosage: 1 OTHER, QD
     Route: 061
     Dates: start: 20161101, end: 20161104

REACTIONS (1)
  - Autoimmune colitis [Recovered/Resolved]

NARRATIVE: CASE EVENT DATE: 20161101
